FAERS Safety Report 11705774 (Version 3)
Quarter: 2015Q4

REPORT INFORMATION
  Report Type: Report from Study
  Country: US (occurrence: US)
  Receive Date: 20151106
  Receipt Date: 20151124
  Transmission Date: 20160304
  Serious: Yes (Hospitalization)
  Sender: FDA-Public Use
  Company Number: US-AMGEN-USASL2015116151

PATIENT

DRUGS (1)
  1. BLINCYTO [Suspect]
     Active Substance: BLINATUMOMAB
     Indication: PRODUCT USED FOR UNKNOWN INDICATION
     Dosage: UNK
     Route: 065

REACTIONS (7)
  - Rhinovirus infection [Unknown]
  - Malaise [Unknown]
  - Peripheral swelling [Unknown]
  - Abdominal pain [Unknown]
  - Pyrexia [Unknown]
  - Stomatitis [Unknown]
  - Neutropenia [Unknown]
